FAERS Safety Report 15335986 (Version 4)
Quarter: 2020Q4

REPORT INFORMATION
  Report Type: Spontaneous
  Country: US (occurrence: US)
  Receive Date: 20180830
  Receipt Date: 20201103
  Transmission Date: 20210113
  Serious: Yes (Other)
  Sender: FDA-Public Use
  Company Number: US-PFIZER INC-2018347852

PATIENT
  Age: 51 Year
  Sex: Female

DRUGS (5)
  1. CHANTIX [Suspect]
     Active Substance: VARENICLINE TARTRATE
     Dosage: UNK
     Dates: start: 2017
  2. DETROL [Concomitant]
     Active Substance: TOLTERODINE TARTRATE
     Indication: SPINA BIFIDA
     Dosage: UNK
     Dates: start: 1991
  3. CHANTIX [Suspect]
     Active Substance: VARENICLINE TARTRATE
     Indication: SMOKING CESSATION THERAPY
     Dosage: UNK
     Dates: start: 2012
  4. CHANTIX [Suspect]
     Active Substance: VARENICLINE TARTRATE
     Dosage: UNK
     Dates: start: 2018
  5. CHANTIX [Suspect]
     Active Substance: VARENICLINE TARTRATE
     Dosage: UNK
     Dates: end: 202009

REACTIONS (20)
  - Heart rate increased [Unknown]
  - Migraine [Unknown]
  - Vision blurred [Unknown]
  - White blood cell count abnormal [Unknown]
  - Pneumonia [Unknown]
  - Cellulitis [Unknown]
  - Rash [Not Recovered/Not Resolved]
  - Weight increased [Unknown]
  - Panic attack [Unknown]
  - Erythema [Not Recovered/Not Resolved]
  - Nightmare [Unknown]
  - Stevens-Johnson syndrome [Unknown]
  - Vertigo [Unknown]
  - Eczema [Unknown]
  - Palpitations [Unknown]
  - Tinnitus [Recovered/Resolved]
  - Blister [Not Recovered/Not Resolved]
  - Suicidal ideation [Unknown]
  - Gait inability [Unknown]
  - Illness [Unknown]

NARRATIVE: CASE EVENT DATE: 2014
